FAERS Safety Report 15948743 (Version 1)
Quarter: 2019Q1

REPORT INFORMATION
  Report Type: Spontaneous
  Country: GB (occurrence: GB)
  Receive Date: 20190212
  Receipt Date: 20190212
  Transmission Date: 20190417
  Serious: Yes (Death)
  Sender: FDA-Public Use
  Company Number: GB-AXELLIA-002237

PATIENT
  Age: 47 Year
  Sex: Male

DRUGS (8)
  1. ENOXAPARIN [Concomitant]
     Active Substance: ENOXAPARIN
  2. CASPOFUNGIN [Suspect]
     Active Substance: CASPOFUNGIN
     Indication: PRODUCT USED FOR UNKNOWN INDICATION
     Dosage: 70 MG STAT THEN 50 MG ONCE DAILY
     Route: 042
     Dates: start: 20190106, end: 20190108
  3. MEROPENEM. [Concomitant]
     Active Substance: MEROPENEM
  4. RANITIDINE. [Concomitant]
     Active Substance: RANITIDINE
  5. LACTULOSE. [Concomitant]
     Active Substance: LACTULOSE
  6. ATORVASTATIN [Concomitant]
     Active Substance: ATORVASTATIN
  7. ACETYLSALICYLIC ACID [Concomitant]
     Active Substance: ASPIRIN
  8. TICAGRELOR. [Concomitant]
     Active Substance: TICAGRELOR

REACTIONS (2)
  - Hypercalcaemia [Fatal]
  - Liver function test increased [Not Recovered/Not Resolved]
